FAERS Safety Report 9735466 (Version 2)
Quarter: 2015Q3

REPORT INFORMATION
  Report Type: Spontaneous
  Country: US (occurrence: US)
  Receive Date: 20131206
  Receipt Date: 20150804
  Transmission Date: 20151125
  Serious: No
  Sender: FDA-Public Use
  Company Number: US-GILEAD-2009-0023255

PATIENT
  Age: 61 Year
  Sex: Male
  Weight: 117.93 kg

DRUGS (14)
  1. NASONEX [Concomitant]
     Active Substance: MOMETASONE FUROATE
  2. AZATHIOPRINE. [Concomitant]
     Active Substance: AZATHIOPRINE
  3. FUROSEMIDE. [Concomitant]
     Active Substance: FUROSEMIDE
  4. ALBUTEROL. [Concomitant]
     Active Substance: ALBUTEROL
  5. LETAIRIS [Suspect]
     Active Substance: AMBRISENTAN
     Indication: PULMONARY ARTERIAL HYPERTENSION
     Route: 048
     Dates: start: 20090504
  6. ADVAIR HFA [Concomitant]
     Active Substance: FLUTICASONE PROPIONATE\SALMETEROL XINAFOATE
  7. PREDNISONE. [Concomitant]
     Active Substance: PREDNISONE
  8. EXFORGE [Concomitant]
     Active Substance: AMLODIPINE BESYLATE\VALSARTAN
  9. ASPIRIN. [Concomitant]
     Active Substance: ASPIRIN
  10. VERAPAMIL [Concomitant]
     Active Substance: VERAPAMIL HYDROCHLORIDE
  11. SPIRIVA [Concomitant]
     Active Substance: TIOTROPIUM BROMIDE MONOHYDRATE
  12. LIPITOR [Concomitant]
     Active Substance: ATORVASTATIN CALCIUM
  13. REVATIO [Concomitant]
     Active Substance: SILDENAFIL CITRATE
  14. OMEPRAZOLE. [Concomitant]
     Active Substance: OMEPRAZOLE

REACTIONS (1)
  - Oedema [Unknown]
